FAERS Safety Report 4866123-8 (Version None)
Quarter: 2005Q4

REPORT INFORMATION
  Report Type: 
  Country: None (occurrence: None)
  Receive Date: 20051227
  Receipt Date: 20050630
  Transmission Date: 20060501
  Serious: Yes (Other)
  Sender: FDA-Public Use
  Company Number: 200511763EU

PATIENT
  Age: 65 Year
  Sex: Female

DRUGS (9)
  1. LASIX [Suspect]
     Route: 048
  2. NATRILIX [Suspect]
     Route: 048
  3. ENALAPRIL MALEATE [Suspect]
  4. PROBITOR [Suspect]
  5. THYROXINE [Concomitant]
  6. OSTELIN [Concomitant]
  7. TENORMIN [Concomitant]
  8. LIPITOR [Concomitant]
  9. LANTUS [Concomitant]

REACTIONS (1)
  - RENAL FAILURE [None]
